FAERS Safety Report 4703988-4 (Version None)
Quarter: 2005Q2

REPORT INFORMATION
  Report Type: 
  Country: None (occurrence: None)
  Receive Date: 20050629
  Receipt Date: 20050614
  Transmission Date: 20051028
  Serious: No
  Sender: FDA-Public Use
  Company Number: 11556

PATIENT
  Age: 46 Year
  Sex: Female

DRUGS (4)
  1. FLUOROURACIL [Suspect]
     Indication: BREAST CANCER
     Dosage: 7200 MG/M2 TOTAL; UNK
     Route: 065
  2. METHOTREXATE [Suspect]
     Indication: BREAST CANCER
     Dosage: 480 MG/M2 TOTAL; UNK
     Route: 065
  3. CYCLOPHOSPHAMIDE [Suspect]
     Indication: BREAST CANCER
     Dosage: 7200 MG/M2 TOTAL; UNK
     Route: 065
  4. TAMOXIFEN CITRATE [Suspect]
     Indication: BREAST CANCER
     Dosage: NI

REACTIONS (3)
  - ACUTE PROMYELOCYTIC LEUKAEMIA [None]
  - BREAST CANCER FEMALE [None]
  - DISEASE RECURRENCE [None]
